FAERS Safety Report 17443858 (Version 1)
Quarter: 2020Q1

REPORT INFORMATION
  Report Type: Spontaneous
  Country: US (occurrence: US)
  Receive Date: 20200220
  Receipt Date: 20200220
  Transmission Date: 20200409
  Serious: Yes (Other)
  Sender: FDA-Public Use
  Company Number: None

PATIENT
  Age: 11 Year
  Sex: Male
  Weight: 7.2 kg

DRUGS (2)
  1. PILOCARPINE. [Suspect]
     Active Substance: PILOCARPINE
     Indication: LACRIMATION INCREASED
     Route: 047
     Dates: start: 20200215, end: 20200215
  2. METRONIDAZOLE. [Concomitant]
     Active Substance: METRONIDAZOLE
     Dates: start: 20200215

REACTIONS (2)
  - Blepharospasm [None]
  - Ocular discomfort [None]

NARRATIVE: CASE EVENT DATE: 20200215
